FAERS Safety Report 7353842-7 (Version None)
Quarter: 2011Q1

REPORT INFORMATION
  Report Type: 
  Country: None (occurrence: None)
  Receive Date: 20110315
  Receipt Date: 20110309
  Transmission Date: 20110831
  Serious: Yes (Other)
  Sender: FDA-Public Use
  Company Number: US-BAYER-2011-022165

PATIENT
  Weight: 68 kg

DRUGS (2)
  1. ALEVE (CAPLET) [Suspect]
     Indication: ARTHRITIS
     Dosage: OTHER FREQUENCY
     Route: 048
     Dates: start: 20110307, end: 20110308
  2. MULTI-VITAMIN [Concomitant]

REACTIONS (4)
  - OEDEMA PERIPHERAL [None]
  - ANURIA [None]
  - LETHARGY [None]
  - EYE SWELLING [None]
